FAERS Safety Report 24864773 (Version 2)
Quarter: 2025Q1

REPORT INFORMATION
  Report Type: Spontaneous
  Country: US (occurrence: US)
  Receive Date: 20250121
  Receipt Date: 20250317
  Transmission Date: 20250409
  Serious: Yes (Other)
  Sender: TEVA
  Company Number: US-TEVA-VS-3287090

PATIENT
  Age: 57 Year
  Sex: Male
  Weight: 102.06 kg

DRUGS (12)
  1. VALSARTAN [Suspect]
     Active Substance: VALSARTAN
     Indication: Hypertension
     Route: 065
     Dates: start: 2015, end: 2018
  2. COD LIVER OIL [Concomitant]
     Active Substance: COD LIVER OIL
     Indication: Cardiac disorder
     Route: 048
     Dates: start: 20110701
  3. VITAMINS [Concomitant]
     Active Substance: VITAMINS
     Indication: Cardiac disorder
     Dosage: 1 TABLET
  4. LEXAPRO [Concomitant]
     Active Substance: ESCITALOPRAM OXALATE
     Indication: Product used for unknown indication
     Route: 048
     Dates: start: 20180827, end: 20190128
  5. DIOVAN [Suspect]
     Active Substance: VALSARTAN
     Indication: Product used for unknown indication
     Route: 048
     Dates: start: 20181001, end: 20191003
  6. ASPIRIN [Concomitant]
     Active Substance: ASPIRIN
     Indication: Product used for unknown indication
     Route: 048
     Dates: end: 20220324
  7. B Complex-C-Folic Acid VITAMIN B COMPLEX/VITAMIN C) [Concomitant]
     Indication: Product used for unknown indication
     Dosage: TAKE 1 TABLET BY MOUTH DAILY
     Route: 048
     Dates: end: 20211215
  8. PLAVIX [Concomitant]
     Active Substance: CLOPIDOGREL BISULFATE
     Indication: Product used for unknown indication
     Dosage: TAKE-1 TABLET (75 MG TOTAL) BY MOUTH DAILY.
     Route: 048
     Dates: start: 20180830, end: 20191003
  9. Empagliflozin-Metformin HCI [Concomitant]
     Indication: Product used for unknown indication
     Route: 048
     Dates: start: 20170307, end: 20190218
  10. GLUCOPHAGE [Concomitant]
     Active Substance: METFORMIN HYDROCHLORIDE
     Indication: Product used for unknown indication
     Dosage: TAKE TWO TABLETS BY MOUTH ONCE DAILY
     Route: 048
     Dates: start: 20181031, end: 20190218
  11. VITAMINS [Concomitant]
     Active Substance: VITAMINS
     Indication: Product used for unknown indication
     Route: 048
  12. CRESTOR [Concomitant]
     Active Substance: ROSUVASTATIN CALCIUM
     Indication: Product used for unknown indication
     Route: 048
     Dates: start: 20180118, end: 20190218

REACTIONS (1)
  - Colon cancer stage III [Unknown]

NARRATIVE: CASE EVENT DATE: 20220113
